FAERS Safety Report 15932768 (Version 1)
Quarter: 2019Q1

REPORT INFORMATION
  Report Type: Other
  Country: US (occurrence: US)
  Receive Date: 20190207
  Receipt Date: 20190207
  Transmission Date: 20190417
  Serious: No
  Sender: FDA-Public Use
  Company Number: US-SLATE RUN PHARMACEUTICALS-SLTR-AE-19-1

PATIENT
  Age: 6 Month
  Sex: Male

DRUGS (5)
  1. ERGOCALCIFEROL. [Suspect]
     Active Substance: ERGOCALCIFEROL
  2. 70436-007-04 CINACALCET HYDROCHLORIDE TABLET 30MG [Suspect]
     Active Substance: CINACALCET HYDROCHLORIDE
     Indication: HYPERPARATHYROIDISM
     Dosage: THE PEAK EFFECTIVE DOSE WAS 7.06 MG/KG/DAY.
  3. CALCIUM CARBONATE. [Concomitant]
     Active Substance: CALCIUM CARBONATE
  4. 70436-007-04 CINACALCET HYDROCHLORIDE TABLET 30MG [Suspect]
     Active Substance: CINACALCET HYDROCHLORIDE
     Indication: HYPERPARATHYROIDISM
     Dosage: THE INITIAL DOSE WAS 0.88 MG/KG/DAY.
  5. CALCIUM SUPPLEMENT [Concomitant]
     Active Substance: CALCIUM
     Dosage: EITHER CALCIUM CARBONATE AND/OR CALCIUM GLUBIONATE WAS USED.

REACTIONS (5)
  - Off label use [Unknown]
  - Toxicity to various agents [None]
  - Hypercalcaemia [Unknown]
  - Hypocalcaemia [Unknown]
  - Disease complication [None]
